FAERS Safety Report 4328883-4 (Version None)
Quarter: 2004Q1

REPORT INFORMATION
  Report Type: 
  Country: None (occurrence: None)
  Receive Date: 20040331
  Receipt Date: 20040318
  Transmission Date: 20041129
  Serious: Yes (Other)
  Sender: FDA-Public Use
  Company Number: 20040300240

PATIENT
  Age: 32 Year
  Sex: Male

DRUGS (1)
  1. PHENERGAN [Suspect]
     Indication: FOOD POISONING
     Dosage: 50 MG DAILY IV
     Route: 042
     Dates: start: 20031001, end: 20031001

REACTIONS (4)
  - HYPOAESTHESIA [None]
  - INJECTION SITE PAIN [None]
  - INJECTION SITE THROMBOSIS [None]
  - MEDICATION ERROR [None]
